FAERS Safety Report 6075923-0 (Version None)
Quarter: 2009Q1

REPORT INFORMATION
  Report Type: 
  Country: None (occurrence: None)
  Receive Date: 20090212
  Receipt Date: 20090202
  Transmission Date: 20090719
  Serious: Yes (Hospitalization)
  Sender: FDA-Public Use
  Company Number: JP-PFIZER INC-2009164481

PATIENT

DRUGS (6)
  1. ZITHROMAX [Suspect]
     Indication: PNEUMONIA PRIMARY ATYPICAL
     Dosage: UNK
     Route: 048
     Dates: start: 20090119, end: 20090128
  2. MEIACT [Suspect]
     Route: 048
     Dates: start: 20090116
  3. MARZULENE [Concomitant]
     Route: 048
     Dates: start: 20090116
  4. MEDICON [Concomitant]
     Route: 048
     Dates: start: 20090119
  5. LOXOPROFEN SODIUM [Concomitant]
     Route: 048
     Dates: start: 20090119
  6. MEPTIN [Concomitant]
     Route: 048
     Dates: start: 20090124

REACTIONS (1)
  - INTERSTITIAL LUNG DISEASE [None]
